FAERS Safety Report 16930245 (Version 2)
Quarter: 2019Q4

REPORT INFORMATION
  Report Type: Report from Study
  Country: CN (occurrence: CN)
  Receive Date: 20191017
  Receipt Date: 20191021
  Transmission Date: 20200122
  Serious: Yes (Death, Other)
  Sender: FDA-Public Use
  Company Number: CN-009507513-1910CHN009830

PATIENT
  Age: 30 Year
  Sex: Male

DRUGS (1)
  1. PEMBROLIZUMAB. [Suspect]
     Active Substance: PEMBROLIZUMAB
     Indication: MALIGNANT MELANOMA
     Dosage: 200 MG/CYCLE, CYCLICAL (ALTERNATE USE) , STRENGTH: 100 MG
     Dates: start: 201811

REACTIONS (3)
  - Tumour haemorrhage [Not Recovered/Not Resolved]
  - Death [Fatal]
  - Nasal injury [Not Recovered/Not Resolved]

NARRATIVE: CASE EVENT DATE: 2019
